FAERS Safety Report 17307506 (Version 1)
Quarter: 2020Q1

REPORT INFORMATION
  Report Type: Spontaneous
  Country: US (occurrence: US)
  Receive Date: 20200122
  Receipt Date: 20200122
  Transmission Date: 20200409
  Serious: No
  Sender: FDA-Public Use
  Company Number: None

PATIENT
  Age: 38 Year
  Sex: Female
  Weight: 60.3 kg

DRUGS (7)
  1. LEVOTHYROXINE 112 MCG [Concomitant]
     Active Substance: LEVOTHYROXINE
  2. IRON [Concomitant]
     Active Substance: IRON
  3. VITAMIN C [Concomitant]
     Active Substance: ASCORBIC ACID
  4. ATOMOXETINE. [Suspect]
     Active Substance: ATOMOXETINE HYDROCHLORIDE
     Indication: ATTENTION DEFICIT/HYPERACTIVITY DISORDER
     Dosage: ?          QUANTITY:1 CAPSULE(S);?
     Route: 048
     Dates: start: 20200121, end: 20200121
  5. COD LIVER OIL [Concomitant]
     Active Substance: COD LIVER OIL
  6. VITAMIN D3 5000 IU/DAY [Concomitant]
  7. OMEGA-3 ACIDS [Concomitant]
     Active Substance: OMEGA-3 FATTY ACIDS

REACTIONS (14)
  - Nausea [None]
  - Hyperacusis [None]
  - Parosmia [None]
  - Chills [None]
  - Photosensitivity reaction [None]
  - Fatigue [None]
  - Ear discomfort [None]
  - Malaise [None]
  - Disturbance in attention [None]
  - Lethargy [None]
  - Feeding disorder [None]
  - Somnolence [None]
  - Feeling cold [None]
  - Feeling abnormal [None]

NARRATIVE: CASE EVENT DATE: 20200121
